FAERS Safety Report 6124021-6 (Version None)
Quarter: 2009Q1

REPORT INFORMATION
  Report Type: 
  Country: None (occurrence: None)
  Receive Date: 20090319
  Receipt Date: 20090310
  Transmission Date: 20090719
  Serious: Yes (Death, Hospitalization)
  Sender: FDA-Public Use
  Company Number: US-AMGEN-US319081

PATIENT
  Sex: Male

DRUGS (6)
  1. NPLATE [Suspect]
     Indication: IDIOPATHIC THROMBOCYTOPENIC PURPURA
     Route: 065
     Dates: start: 20080929, end: 20080930
  2. PREDNISONE [Concomitant]
     Route: 065
  3. METOPROLOL TARTRATE [Concomitant]
     Route: 065
  4. PANTOPRAZOLE SODIUM [Concomitant]
     Route: 065
  5. DANAZOL [Concomitant]
     Route: 065
     Dates: start: 20080801, end: 20080829
  6. CORTICOSTEROID NOS [Concomitant]
     Route: 065
     Dates: start: 20080516, end: 20080929

REACTIONS (6)
  - ABDOMINAL PAIN UPPER [None]
  - ANEURYSM RUPTURED [None]
  - CONTUSION [None]
  - DIARRHOEA [None]
  - FALL [None]
  - OEDEMA PERIPHERAL [None]
